FAERS Safety Report 14255282 (Version 1)
Quarter: 2017Q4

REPORT INFORMATION
  Report Type: Spontaneous
  Country: IT (occurrence: IT)
  Receive Date: 20171206
  Receipt Date: 20171206
  Transmission Date: 20180321
  Serious: Yes (Other)
  Sender: FDA-Public Use
  Company Number: IT-ROCHE-2036921

PATIENT
  Age: 19 Year
  Sex: Female

DRUGS (3)
  1. GANCICLOVIR. [Suspect]
     Active Substance: GANCICLOVIR
     Indication: PRODUCT USED FOR UNKNOWN INDICATION
     Dosage: BY SLOW INFUSION (} 10 MIN) INTO THE UMBILICAL VEIN AT ITS PLACENTAL INSERTION OR INTRAHEPATIC PORTI
     Route: 042
  2. GANCICLOVIR. [Suspect]
     Active Substance: GANCICLOVIR
     Dosage: BY SLOW INFUSION (} 10 MIN) INTO THE UMBILICAL VEIN AT ITS PLACENTAL INSERTION OR INTRAHEPATIC PORTI
     Route: 042
  3. GANCICLOVIR. [Suspect]
     Active Substance: GANCICLOVIR
     Dosage: BY SLOW INFUSION (} 10 MIN) INTO THE UMBILICAL VEIN AT ITS PLACENTAL INSERTION OR INTRAHEPATIC PORTI
     Route: 042

REACTIONS (3)
  - Amniotic fluid volume decreased [Unknown]
  - Stillbirth [Unknown]
  - Maternal exposure during pregnancy [Unknown]
